FAERS Safety Report 4642094-4 (Version None)
Quarter: 2005Q2

REPORT INFORMATION
  Report Type: 
  Country: None (occurrence: None)
  Receive Date: 20050420
  Receipt Date: 20050420
  Transmission Date: 20051028
  Serious: Yes (Hospitalization)
  Sender: FDA-Public Use
  Company Number: None

PATIENT
  Age: 20 Year
  Sex: Male
  Weight: 116 kg

DRUGS (2)
  1. HALOPERIDOL DECANOATE [Suspect]
     Indication: SCHIZOPHRENIA
     Dosage: 75 MG IM X 1     1 WEEK PRIOR TO ADMISSION
     Route: 030
  2. RISPERDAL [Suspect]
     Dosage: 4MG BID PO    1 WEEK PRIOR TO ADMISSION
     Route: 048

REACTIONS (3)
  - AGITATION [None]
  - NEUROLEPTIC MALIGNANT SYNDROME [None]
  - TACHYPNOEA [None]
